FAERS Safety Report 4270925-9 (Version None)
Quarter: 2004Q1

REPORT INFORMATION
  Report Type: 
  Country: None (occurrence: None)
  Receive Date: 20040113
  Receipt Date: 20031222
  Transmission Date: 20041129
  Serious: Yes (Other)
  Sender: FDA-Public Use
  Company Number: DEU-2003-0000668

PATIENT
  Age: 59 Year
  Sex: Male
  Weight: 80 kg

DRUGS (5)
  1. MST(MORPHINE SULFATE)MST (MORPHINE SULFATE) [Suspect]
     Indication: PAIN
     Dosage: SEE TEXT, ORAL; 40 MG, TID, ORAL
     Route: 048
     Dates: start: 19961216, end: 19990101
  2. MST(MORPHINE SULFATE)MST (MORPHINE SULFATE) [Suspect]
     Indication: PAIN
     Dosage: SEE TEXT, ORAL; 40 MG, TID, ORAL
     Route: 048
     Dates: start: 19961216
  3. SEVREDOL 10 MG (MORPHINE SULFATE) [Suspect]
     Indication: PAIN
     Dosage: 10 MG, PRN, ORAL
     Route: 048
  4. AMITRIPTYLINE HYDROCHLORIDE [Suspect]
     Indication: PAIN
     Dosage: 25 MG, DAILY, ORAL
     Route: 048
     Dates: start: 19970101
  5. NEURONTIN [Concomitant]

REACTIONS (4)
  - BRUXISM [None]
  - DENTAL CARIES [None]
  - DRY MOUTH [None]
  - HYPOAESTHESIA TEETH [None]
